FAERS Safety Report 7065419-1 (Version None)
Quarter: 2010Q4

REPORT INFORMATION
  Report Type: 
  Country: None (occurrence: None)
  Receive Date: 20101019
  Receipt Date: 20101004
  Transmission Date: 20110411
  Serious: No
  Sender: FDA-Public Use
  Company Number: 018619

PATIENT
  Sex: Female

DRUGS (1)
  1. CIMZIA [Suspect]
     Indication: CROHN'S DISEASE
     Dosage: SUBCUTANEOUS
     Route: 058
     Dates: start: 20100819

REACTIONS (4)
  - DEHYDRATION [None]
  - HAEMOGLOBIN ABNORMAL [None]
  - VIRAL INFECTION [None]
  - WEIGHT DECREASED [None]
